FAERS Safety Report 5217596-2 (Version None)
Quarter: 2007Q1

REPORT INFORMATION
  Report Type: 
  Country: None (occurrence: None)
  Receive Date: 20070124
  Receipt Date: 20060508
  Transmission Date: 20070707
  Serious: No
  Sender: FDA-Public Use
  Company Number: US-GLAXOSMITHKLINE-A0603222A

PATIENT
  Age: 49 Year
  Sex: Female

DRUGS (2)
  1. PAXIL CR [Suspect]
     Indication: DEPRESSION
     Dosage: 12.5MG PER DAY
     Route: 048
  2. LEVOTHROID [Concomitant]

REACTIONS (7)
  - ANXIETY [None]
  - CONDITION AGGRAVATED [None]
  - FEELING ABNORMAL [None]
  - MENTAL IMPAIRMENT [None]
  - SKIN TIGHTNESS [None]
  - TENSION [None]
  - THERAPEUTIC RESPONSE DECREASED [None]
